FAERS Safety Report 12956470 (Version 5)
Quarter: 2017Q1

REPORT INFORMATION
  Report Type: Report from Study
  Country: CA (occurrence: CA)
  Receive Date: 20161118
  Receipt Date: 20170216
  Transmission Date: 20170428
  Serious: Yes (Other)
  Sender: FDA-Public Use
  Company Number: CA-JNJFOC-20160906761

PATIENT
  Age: 76 Year
  Sex: Male

DRUGS (5)
  1. ALLOPURINOL. [Concomitant]
     Active Substance: ALLOPURINOL
     Indication: GOUT
     Route: 065
  2. SANDOZ CANDESARTAN [Concomitant]
     Indication: HYPERTENSION
     Route: 065
     Dates: start: 20160913
  3. COLCHICINE. [Concomitant]
     Active Substance: COLCHICINE
     Indication: GOUT
     Route: 065
  4. COVERSYL [Concomitant]
     Active Substance: PERINDOPRIL
     Indication: HYPERTENSION
     Route: 065
     Dates: end: 20160912
  5. IMBRUVICA [Suspect]
     Active Substance: IBRUTINIB
     Indication: CHRONIC LYMPHOCYTIC LEUKAEMIA
     Route: 048
     Dates: start: 20160818

REACTIONS (12)
  - Gout [Recovering/Resolving]
  - Blood pressure increased [Recovering/Resolving]
  - Muscular weakness [Recovered/Resolved]
  - Dizziness [Recovering/Resolving]
  - Asthenia [Recovered/Resolved]
  - Haemoglobin decreased [Not Recovered/Not Resolved]
  - Nausea [Recovered/Resolved]
  - Pain [Unknown]
  - Fatigue [Recovering/Resolving]
  - White blood cell count decreased [Unknown]
  - Blood potassium decreased [Recovered/Resolved]
  - Contusion [Not Recovered/Not Resolved]

NARRATIVE: CASE EVENT DATE: 2016
